FAERS Safety Report 8778983 (Version 2)
Quarter: 2014Q2

REPORT INFORMATION
  Report Type: Spontaneous
  Country: US (occurrence: US)
  Receive Date: 20120912
  Receipt Date: 20131017
  Transmission Date: 20141212
  Serious: Yes (Other)
  Sender: FDA-Public Use
  Company Number: US-PFIZER INC-2012223193

PATIENT
  Age: 29 Year
  Sex: Female
  Weight: 89.8 kg

DRUGS (4)
  1. DILANTIN [Suspect]
     Indication: GENERALISED TONIC-CLONIC SEIZURE
     Dosage: UNK
  2. DILANTIN [Suspect]
     Indication: EPILEPSY
  3. DILANTIN [Suspect]
     Indication: GENERALISED TONIC-CLONIC SEIZURE
     Dosage: 3 CAPSULES 100MG EACH IN MORNING AND 2 CAPSULES 100MG EACH AT NIGHT
     Route: 048
  4. DILANTIN [Suspect]
     Indication: EPILEPSY

REACTIONS (2)
  - Fibromyalgia [Not Recovered/Not Resolved]
  - Myalgia [Not Recovered/Not Resolved]
